FAERS Safety Report 25235670 (Version 1)
Quarter: 2025Q2

REPORT INFORMATION
  Report Type: Spontaneous
  Country: CN (occurrence: CN)
  Receive Date: 20250424
  Receipt Date: 20250424
  Transmission Date: 20250716
  Serious: Yes (Other)
  Sender: JOHNSON AND JOHNSON
  Company Number: CN-JNJFOC-20250422709

PATIENT
  Age: 56 Year
  Sex: Male
  Weight: 75 kg

DRUGS (1)
  1. DARZALEX FASPRO [Suspect]
     Active Substance: DARATUMUMAB\HYALURONIDASE-FIHJ
     Indication: Chemotherapy
     Route: 058
     Dates: start: 20250411, end: 20250411

REACTIONS (6)
  - Urticaria [Recovered/Resolved]
  - Swelling face [Recovered/Resolved]
  - Hypopnoea [Recovered/Resolved]
  - Laryngeal oedema [Recovered/Resolved]
  - Nasal obstruction [Recovered/Resolved]
  - Off label use [Unknown]

NARRATIVE: CASE EVENT DATE: 20250411
